FAERS Safety Report 20170573 (Version 2)
Quarter: 2021Q4

REPORT INFORMATION
  Report Type: Spontaneous
  Country: FR (occurrence: FR)
  Receive Date: 20211210
  Receipt Date: 20211217
  Transmission Date: 20220303
  Serious: Yes (Hospitalization)
  Sender: FDA-Public Use
  Company Number: FR-FRESENIUS KABI-FK202111555

PATIENT
  Age: 34 Year
  Sex: Male
  Weight: 64 kg

DRUGS (12)
  1. OXALIPLATIN [Suspect]
     Active Substance: OXALIPLATIN
     Indication: Hepatic cancer
     Dosage: UNK, CURE 2 DOSE REDUCED IN 20 PERCENT AT CURE 2 AND THE ADMINISTRATION OVER 4 HOURS
  2. OXALIPLATIN [Suspect]
     Active Substance: OXALIPLATIN
     Dosage: UNK, AT CURE 3 AT 20 PERCENT OVER 4 HOURS
  3. OXALIPLATIN [Suspect]
     Active Substance: OXALIPLATIN
     Dosage: UNK, AT CURE 4 OVER 2 HOURS
  4. LEUCOVORIN CALCIUM [Suspect]
     Active Substance: LEUCOVORIN CALCIUM
     Indication: Hepatic cancer
     Dosage: CURE 1, DAY 1
  5. FLUOROURACIL [Suspect]
     Active Substance: FLUOROURACIL
     Indication: Hepatic cancer
     Dosage: CURE 1, DAY 1
  6. IRINOTECAN HYDROCHLORIDE [Suspect]
     Active Substance: IRINOTECAN HYDROCHLORIDE
     Indication: Hepatic cancer
     Dosage: UNK, AT CURE 4 OVER 3 HOURS, STRENGTH: 20 MG/ML
     Route: 042
     Dates: start: 20210105, end: 20210505
  7. IRINOTECAN HYDROCHLORIDE [Suspect]
     Active Substance: IRINOTECAN HYDROCHLORIDE
     Indication: Pancreatic carcinoma metastatic
     Dosage: 180 MILLIGRAM/SQ. METER
     Dates: start: 20210115, end: 20210505
  8. IRINOTECAN HYDROCHLORIDE [Suspect]
     Active Substance: IRINOTECAN HYDROCHLORIDE
     Dosage: UNK, AT CURE 3 IN FIRST TREATMENT
     Route: 042
  9. FLUOROURACIL\IRINOTECAN\LEUCOVORIN\OXALIPLATIN [Suspect]
     Active Substance: FLUOROURACIL\IRINOTECAN\LEUCOVORIN\OXALIPLATIN
     Indication: Hepatic cancer
     Dosage: UNK, CURE 1, DAY 1
  10. OXALIPLATIN [Concomitant]
     Active Substance: OXALIPLATIN
     Indication: Hepatic cancer
     Dosage: UNK (AT CURE 3 AT -20 PERCENT OVER 4 HOURS)
  11. OXALIPLATIN [Concomitant]
     Active Substance: OXALIPLATIN
     Dosage: UNK (AT CURE 4 OVER 2 HOURS)
  12. OXALIPLATIN [Concomitant]
     Active Substance: OXALIPLATIN
     Dosage: UNK (CURE 2DOSE WAS REDUCED IN -20 PERCENT AT CURE 2 AND THE ADMINISTRATION WAS OVER 4 HOURS)

REACTIONS (2)
  - Dysarthria [Recovered/Resolved]
  - Vision blurred [Recovered/Resolved]

NARRATIVE: CASE EVENT DATE: 20210115
